FAERS Safety Report 21204906 (Version 1)
Quarter: 2022Q3

REPORT INFORMATION
  Report Type: Spontaneous
  Country: BR (occurrence: BR)
  Receive Date: 20220812
  Receipt Date: 20220812
  Transmission Date: 20221027
  Serious: Yes (Other)
  Sender: FDA-Public Use
  Company Number: BR-NOVOPROD-946216

PATIENT
  Age: 54 Year
  Sex: Male
  Weight: 78 kg

DRUGS (11)
  1. NOVOLIN R [Suspect]
     Active Substance: INSULIN HUMAN
     Dosage: UNK
  2. NOVOLIN R [Suspect]
     Active Substance: INSULIN HUMAN
     Indication: Diabetes mellitus
     Dosage: 67 IU, QD (12IU BEFORE BREAKFAST, 20IU BEFORE LUNCH, 15IU BEFORE DINNER AND 20IU BEFORE SUPPER)
     Dates: start: 2018
  3. GLICLAZIDE [Concomitant]
     Active Substance: GLICLAZIDE
     Indication: Cardiac disorder
     Dosage: 30 MG
  4. ZETIA [Concomitant]
     Active Substance: EZETIMIBE
     Indication: Cardiac disorder
     Dosage: 10 MG
  5. RAMIPRIL [Concomitant]
     Active Substance: RAMIPRIL
     Indication: Cardiac disorder
     Dosage: 10 MG
  6. DAPAGLIFLOZIN [Concomitant]
     Active Substance: DAPAGLIFLOZIN
     Indication: Cardiac disorder
     Dosage: 10 MG
  7. ROSUVASTATIN CALCIUM [Concomitant]
     Active Substance: ROSUVASTATIN CALCIUM
     Indication: Cardiac disorder
     Dosage: 20 MG
  8. ASPIRIN\DIHYDROXYALUMINUM AMINOACETATE ANHYDROUS\MAGNESIUM CARBONATE [Concomitant]
     Active Substance: ASPIRIN\DIHYDROXYALUMINUM AMINOACETATE ANHYDROUS\MAGNESIUM CARBONATE
     Indication: Cardiac disorder
     Dosage: 801MG
  9. PANTOPRAZOLE [Concomitant]
     Active Substance: PANTOPRAZOLE
     Indication: Gastrooesophageal reflux disease
     Dosage: 20 MG
  10. TRIMEBUTINA [TRIMEBUTINE MALEATE] [Concomitant]
     Indication: Gastrooesophageal reflux disease
     Dosage: 200 MG
  11. BISOTROL [Concomitant]
     Indication: Cardiac disorder
     Dosage: 10MG

REACTIONS (3)
  - Myocardial infarction [Unknown]
  - Blood glucose fluctuation [Recovered/Resolved]
  - Drug ineffective [Recovered/Resolved]

NARRATIVE: CASE EVENT DATE: 20220216
